FAERS Safety Report 7025522-9 (Version None)
Quarter: 2010Q4

REPORT INFORMATION
  Report Type: 
  Country: None (occurrence: None)
  Receive Date: 20101003
  Receipt Date: 20100921
  Transmission Date: 20110411
  Serious: Yes (Hospitalization)
  Sender: FDA-Public Use
  Company Number: PHHY2010FR26618

PATIENT
  Sex: Female
  Weight: 66 kg

DRUGS (1)
  1. RASILEZ [Suspect]
     Indication: HYPERTENSION
     Dosage: 150 MG FOR 3 OR 4 DAYS
     Dates: start: 20100320, end: 20100328

REACTIONS (6)
  - DYSPNOEA EXERTIONAL [None]
  - NAUSEA [None]
  - PAIN [None]
  - PYREXIA [None]
  - RENAL FAILURE ACUTE [None]
  - VOMITING [None]
